FAERS Safety Report 7046724-1 (Version None)
Quarter: 2010Q4

REPORT INFORMATION
  Report Type: 
  Country: None (occurrence: None)
  Receive Date: 20101015
  Receipt Date: 20101006
  Transmission Date: 20110411
  Serious: Yes (Other)
  Sender: FDA-Public Use
  Company Number: JP-JNJFOC-20101003538

PATIENT
  Age: 23 Year
  Sex: Female

DRUGS (1)
  1. CRAVIT [Suspect]
     Indication: CYSTITIS
     Route: 048

REACTIONS (5)
  - ANAPHYLACTIC REACTION [None]
  - BLISTER [None]
  - CHILLS [None]
  - OCULOGYRIC CRISIS [None]
  - VIITH NERVE PARALYSIS [None]
